FAERS Safety Report 8147026-2 (Version None)
Quarter: 2012Q1

REPORT INFORMATION
  Report Type: 
  Country: None (occurrence: None)
  Receive Date: 20120218
  Receipt Date: 20110315
  Transmission Date: 20120608
  Serious: Yes (Hospitalization)
  Sender: FDA-Public Use
  Company Number: US-ALLERGAN-1012613US

PATIENT
  Age: 50 Year
  Sex: Female
  Weight: 56.689 kg

DRUGS (2)
  1. LIPITOR [Concomitant]
     Indication: HYPERCHOLESTEROLAEMIA
     Dosage: 10 MG, QD
     Route: 048
     Dates: start: 20050101
  2. BOTOX COSMETIC [Suspect]
     Indication: SKIN WRINKLING
     Dosage: 32 UNITS, SINGLE Q 4 MONTHS
     Route: 030
     Dates: start: 20100930, end: 20100930

REACTIONS (2)
  - CHEST PAIN [None]
  - PNEUMOTHORAX [None]
